FAERS Safety Report 8446928-7 (Version None)
Quarter: 2012Q2

REPORT INFORMATION
  Report Type: 
  Country: None (occurrence: None)
  Receive Date: 20120613
  Receipt Date: 20120613
  Transmission Date: 20120825
  Serious: Yes (Other)
  Sender: FDA-Public Use
  Company Number: None

PATIENT
  Age: 31 Year
  Sex: Male

DRUGS (3)
  1. LEVETIRACETAM [Suspect]
     Indication: CONVULSION
     Dosage: 500MG  5 A DAY, PO
     Route: 048
  2. GAVAPENTIN [Concomitant]
  3. TOPAMAX [Concomitant]

REACTIONS (9)
  - COORDINATION ABNORMAL [None]
  - GAIT DISTURBANCE [None]
  - DYSPNOEA [None]
  - DEPRESSION [None]
  - NAUSEA [None]
  - ASTHENIA [None]
  - FALL [None]
  - DIZZINESS [None]
  - HEADACHE [None]
